FAERS Safety Report 23198405 (Version 1)
Quarter: 2023Q4

REPORT INFORMATION
  Report Type: Spontaneous
  Country: US (occurrence: None)
  Receive Date: 20231117
  Receipt Date: 20231117
  Transmission Date: 20240110
  Serious: No
  Sender: FDA-Public Use
  Company Number: 2023A256943

PATIENT

DRUGS (2)
  1. FARXIGA [Suspect]
     Active Substance: DAPAGLIFLOZIN PROPANEDIOL
     Route: 048
  2. ELIQUIS [Concomitant]
     Active Substance: APIXABAN

REACTIONS (17)
  - Functional gastrointestinal disorder [Unknown]
  - Glucose urine present [Unknown]
  - Blood glucose abnormal [Unknown]
  - Anal incontinence [Unknown]
  - Gastric dilatation [Unknown]
  - Abdominal distension [Unknown]
  - Peripheral swelling [Unknown]
  - Skin discolouration [Unknown]
  - Skin weeping [Unknown]
  - Pseudomonas infection [Unknown]
  - Cellulitis [Unknown]
  - Neuralgia [Unknown]
  - Nerve injury [Unknown]
  - Urinary tract infection [Unknown]
  - Vision blurred [Unknown]
  - Dizziness [Unknown]
  - Abdominal discomfort [Unknown]
